FAERS Safety Report 12376468 (Version 6)
Quarter: 2016Q3

REPORT INFORMATION
  Report Type: Spontaneous
  Country: BR (occurrence: BR)
  Receive Date: 20160517
  Receipt Date: 20160927
  Transmission Date: 20161109
  Serious: Yes (Other)
  Sender: FDA-Public Use
  Company Number: BR-SA-2016SA093808

PATIENT
  Age: 69 Year
  Sex: Male
  Weight: 67 kg

DRUGS (15)
  1. CLOPIDOGREL [Concomitant]
     Active Substance: CLOPIDOGREL BISULFATE
  2. METFORMIN [Concomitant]
     Active Substance: METFORMIN HYDROCHLORIDE
     Indication: MULTIPLE DRUG THERAPY
     Route: 048
  3. LOSARTAN. [Concomitant]
     Active Substance: LOSARTAN
     Dates: start: 20140623
  4. NOVORAPID [Suspect]
     Active Substance: INSULIN ASPART
     Indication: TYPE 2 DIABETES MELLITUS
     Dosage: AS PER THE NECESSITY (ABOUT 12 IU /DAY)
     Route: 058
     Dates: start: 20140623
  5. NOVORAPID [Suspect]
     Active Substance: INSULIN ASPART
     Indication: TYPE 2 DIABETES MELLITUS
     Route: 058
     Dates: start: 20150121
  6. LOTAR [Concomitant]
     Active Substance: AMLODIPINE\LOSARTAN
  7. LANTUS [Suspect]
     Active Substance: INSULIN GLARGINE
     Indication: TYPE 2 DIABETES MELLITUS
     Route: 058
  8. LANTUS [Suspect]
     Active Substance: INSULIN GLARGINE
     Indication: TYPE 2 DIABETES MELLITUS
     Route: 058
     Dates: start: 20150121
  9. CLIKSTAR [Suspect]
     Active Substance: CLIKSTAR
     Dates: start: 2011
  10. CLINFAR [Concomitant]
     Active Substance: SIMVASTATIN
     Dates: start: 20140623
  11. BUFFERIN [Concomitant]
     Active Substance: ASPIRIN
     Dates: start: 20140623
  12. LANTUS [Suspect]
     Active Substance: INSULIN GLARGINE
     Indication: TYPE 2 DIABETES MELLITUS
     Dosage: DOSE: 36 TO 38 IU
     Route: 058
     Dates: start: 2011
  13. LANTUS [Suspect]
     Active Substance: INSULIN GLARGINE
     Indication: TYPE 2 DIABETES MELLITUS
     Route: 058
     Dates: start: 20140623
  14. NOVORAPID [Suspect]
     Active Substance: INSULIN ASPART
     Indication: TYPE 2 DIABETES MELLITUS
     Route: 058
     Dates: start: 20150804
  15. LANTUS [Suspect]
     Active Substance: INSULIN GLARGINE
     Indication: TYPE 2 DIABETES MELLITUS
     Route: 058
     Dates: start: 20150804

REACTIONS (8)
  - Device issue [Unknown]
  - Cerebrovascular accident [Recovered/Resolved]
  - Glycosylated haemoglobin increased [Unknown]
  - Blood glucose fluctuation [Recovered/Resolved]
  - Intentional product misuse [Unknown]
  - Blood glucose increased [Recovered/Resolved]
  - Fall [Unknown]
  - Neuropathy peripheral [Not Recovered/Not Resolved]

NARRATIVE: CASE EVENT DATE: 20140623
